FAERS Safety Report 6299733-4 (Version None)
Quarter: 2009Q3

REPORT INFORMATION
  Report Type: 
  Country: None (occurrence: None)
  Receive Date: 20090806
  Receipt Date: 20090803
  Transmission Date: 20100115
  Serious: Yes (Other)
  Sender: FDA-Public Use
  Company Number: US-MERCK-0906USA01433

PATIENT
  Sex: Male

DRUGS (1)
  1. PROSCAR [Suspect]
     Indication: PROSTATOMEGALY
     Route: 048
     Dates: start: 20080101, end: 20090101

REACTIONS (2)
  - GYNAECOMASTIA [None]
  - PROSTATE CANCER [None]
